FAERS Safety Report 7330382-2 (Version None)
Quarter: 2011Q1

REPORT INFORMATION
  Report Type: 
  Country: None (occurrence: None)
  Receive Date: 20110304
  Receipt Date: 20110224
  Transmission Date: 20110831
  Serious: Yes (Hospitalization)
  Sender: FDA-Public Use
  Company Number: US-BIOGENIDEC-2011BI007361

PATIENT
  Age: 62 Year
  Sex: Female

DRUGS (1)
  1. AVONEX [Suspect]
     Indication: MULTIPLE SCLEROSIS
     Route: 030
     Dates: start: 20040420

REACTIONS (11)
  - GAIT DISTURBANCE [None]
  - DEPRESSION [None]
  - MYOCARDIAL INFARCTION [None]
  - AMNESIA [None]
  - INJECTION SITE HAEMORRHAGE [None]
  - MULTIPLE SCLEROSIS RELAPSE [None]
  - INJECTION SITE PAIN [None]
  - TRANSIENT ISCHAEMIC ATTACK [None]
  - PANIC ATTACK [None]
  - ARTERIAL OCCLUSIVE DISEASE [None]
  - INJECTION SITE HAEMATOMA [None]
